FAERS Safety Report 7657469-9 (Version None)
Quarter: 2011Q3

REPORT INFORMATION
  Report Type: 
  Country: None (occurrence: None)
  Receive Date: 20110804
  Receipt Date: 20110722
  Transmission Date: 20111222
  Serious: Yes (Hospitalization)
  Sender: FDA-Public Use
  Company Number: US-CELGENEUS-163-21880-11072880

PATIENT
  Sex: Female

DRUGS (11)
  1. LANOXIN [Concomitant]
     Route: 065
  2. CELEXA [Concomitant]
     Route: 065
  3. SPIRIVA [Concomitant]
     Route: 065
  4. PRILOSEC [Concomitant]
     Route: 065
  5. NASAL SPRAY [Concomitant]
     Route: 045
  6. SYNTHROID [Concomitant]
     Route: 065
  7. REVLIMID [Suspect]
     Indication: MULTIPLE MYELOMA
     Dosage: 10 MILLIGRAM
     Route: 048
     Dates: start: 20100731
  8. POTASSIUM [Concomitant]
     Route: 065
  9. VENTOLIN HFA [Concomitant]
     Route: 065
  10. CARDIZEM [Concomitant]
     Route: 065
  11. COUMADIN [Concomitant]
     Route: 065

REACTIONS (2)
  - GASTROINTESTINAL DISORDER [None]
  - DEEP VEIN THROMBOSIS [None]
